FAERS Safety Report 24376455 (Version 1)
Quarter: 2024Q3

REPORT INFORMATION
  Report Type: Other
  Country: ES (occurrence: ES)
  Receive Date: 20240930
  Receipt Date: 20240930
  Transmission Date: 20241016
  Serious: Yes (Hospitalization)
  Sender: BIOCON
  Company Number: None

PATIENT

DRUGS (6)
  1. ADALIMUMAB [Suspect]
     Active Substance: ADALIMUMAB
     Indication: Hidradenitis
     Dosage: 2.0 ML INJECTION, PRE-FILLED SYRINGE, EVERY 15 DAYS.
     Route: 058
     Dates: start: 20240823
  2. SIBILLA DIARIO [Concomitant]
     Indication: Hidradenitis
     Dosage: 2 MG/0.03 MG FILM-COATED TABLETS EFG, 3 X (21+7) TABLETS, QD
     Route: 048
     Dates: start: 20240522
  3. EPIDUO FORTE [Concomitant]
     Active Substance: ADAPALENE\BENZOYL PEROXIDE
     Indication: Acne
     Dosage: 1.0 APPLICATION EVERY 24 HOURS(3 MG/G + 25 MG/G GEL, 1 MULTI-DOSE CONTAINER OF 45 G)
     Route: 061
     Dates: start: 20240720
  4. METAMIZOLE\PROPOXYPHENE [Concomitant]
     Active Substance: METAMIZOLE\PROPOXYPHENE
     Indication: Abdominal pain
     Dosage: 575.0 MG BREAKFAST - LUNCH - DINNER (575 MG HARD CAPSULES, 20 CAPSULES)
     Route: 048
     Dates: start: 20220228
  5. CANRENOATE POTASSIUM [Concomitant]
     Active Substance: CANRENOATE POTASSIUM
     Indication: Hidradenitis
     Dosage: 25 MG (BREAKFAST)
     Route: 048
     Dates: start: 20240522
  6. OMEPRAZOLE [Concomitant]
     Active Substance: OMEPRAZOLE
     Indication: Abdominal pain
     Dosage: 40.0 MG SNACKS - BREAKFAST
     Route: 048
     Dates: start: 20220301

REACTIONS (2)
  - Pulmonary embolism [Recovering/Resolving]
  - Drug interaction [Recovering/Resolving]

NARRATIVE: CASE EVENT DATE: 20240909
